FAERS Safety Report 7439688-X (Version None)
Quarter: 2011Q2

REPORT INFORMATION
  Report Type: 
  Country: None (occurrence: None)
  Receive Date: 20110427
  Receipt Date: 20110414
  Transmission Date: 20111010
  Serious: Yes (Hospitalization)
  Sender: FDA-Public Use
  Company Number: PHHY2011AU04570

PATIENT
  Sex: Male

DRUGS (2)
  1. CLOZARIL [Suspect]
     Indication: SCHIZOPHRENIA
     Dosage: 250 MG, UNK
     Route: 048
     Dates: start: 20100723, end: 20110207
  2. CLOZARIL [Suspect]
     Dosage: 450 MG, DAILY
     Route: 048

REACTIONS (2)
  - SCHIZOPHRENIA [None]
  - MALAISE [None]
